FAERS Safety Report 7799928-4 (Version None)
Quarter: 2011Q4

REPORT INFORMATION
  Report Type: 
  Country: None (occurrence: None)
  Receive Date: 20111004
  Receipt Date: 20110922
  Transmission Date: 20120403
  Serious: Yes (Other)
  Sender: FDA-Public Use
  Company Number: DSA_47413_2011

PATIENT
  Sex: Male

DRUGS (4)
  1. MAXZIDE [Suspect]
     Indication: BLOOD PRESSURE ABNORMAL
     Dosage: DF ORAL
     Route: 048
  2. DILTIAZEM HCL [Suspect]
     Indication: BLOOD PRESSURE ABNORMAL
     Dosage: DF ORAL
     Route: 048
  3. LIPITOR [Suspect]
     Indication: BLOOD CHOLESTEROL INCREASED
     Dosage: DF ORAL
     Route: 048
     Dates: start: 20100101, end: 20110101
  4. LIPITOR [Suspect]
     Indication: BLOOD TRIGLYCERIDES INCREASED
     Dosage: DF ORAL
     Route: 048
     Dates: start: 20100101, end: 20110101

REACTIONS (3)
  - MYALGIA [None]
  - WRONG TECHNIQUE IN DRUG USAGE PROCESS [None]
  - DRUG INTERACTION [None]
